FAERS Safety Report 4785473-7 (Version None)
Quarter: 2005Q4

REPORT INFORMATION
  Report Type: 
  Country: None (occurrence: None)
  Receive Date: 20051003
  Receipt Date: 20050624
  Transmission Date: 20060501
  Serious: Yes (Death, Other)
  Sender: FDA-Public Use
  Company Number: 2005AP03481

PATIENT
  Age: 25191 Day
  Sex: Male
  Weight: 46.4 kg

DRUGS (10)
  1. IRESSA [Suspect]
     Indication: LUNG SQUAMOUS CELL CARCINOMA STAGE UNSPECIFIED
     Route: 048
     Dates: start: 20041025, end: 20041104
  2. TAKEPRON [Concomitant]
     Indication: GASTRIC ULCER
     Route: 048
     Dates: start: 20040918, end: 20041104
  3. MUCOSTA [Concomitant]
     Indication: GASTRIC ULCER
     Route: 048
     Dates: start: 20040918, end: 20041104
  4. CONTOMIN [Concomitant]
     Indication: ANXIETY DISORDER
     Route: 048
     Dates: start: 20040918, end: 20041104
  5. VOLTAREN [Concomitant]
     Indication: CANCER PAIN
     Route: 048
     Dates: start: 20040918, end: 20041104
  6. PURSENNID [Concomitant]
     Indication: CONSTIPATION
     Route: 048
     Dates: start: 20040918, end: 20041104
  7. PRIMPERAN INJ [Concomitant]
     Indication: GASTROINTESTINAL DISORDER
     Route: 048
     Dates: start: 20040918, end: 20041104
  8. AREDIA [Concomitant]
     Indication: HYPERCALCAEMIA
     Route: 041
     Dates: start: 20041004
  9. DUROTEP [Concomitant]
     Indication: CANCER PAIN
     Dates: start: 20041025
  10. GASCON [Concomitant]
     Indication: SUBILEUS
     Route: 048
     Dates: start: 20041102, end: 20041104

REACTIONS (2)
  - ABDOMINAL DISTENSION [None]
  - INTERSTITIAL LUNG DISEASE [None]
